FAERS Safety Report 16766194 (Version 1)
Quarter: 2019Q4

REPORT INFORMATION
  Report Type: Spontaneous
  Country: US (occurrence: US)
  Receive Date: 20190830
  Receipt Date: 20190830
  Transmission Date: 20200122
  Serious: Yes (Death, Life-Threatening, Hospitalization, Disabling)
  Sender: FDA-Public Use
  Company Number: None

PATIENT
  Age: 41 Year
  Sex: Female
  Weight: 134 kg

DRUGS (1)
  1. LIRAGLUTIDE [Suspect]
     Active Substance: LIRAGLUTIDE
     Indication: OBESITY

REACTIONS (4)
  - Pancreatitis [None]
  - Multiple organ dysfunction syndrome [None]
  - Parathyroid tumour benign [None]
  - Hypercalcaemia [None]

NARRATIVE: CASE EVENT DATE: 20190708
